FAERS Safety Report 8308733-1 (Version None)
Quarter: 2012Q2

REPORT INFORMATION
  Report Type: 
  Country: None (occurrence: None)
  Receive Date: 20120424
  Receipt Date: 20120418
  Transmission Date: 20120825
  Serious: Yes (Death, Hospitalization)
  Sender: FDA-Public Use
  Company Number: US-CELGENEUS-163-C5013-11112355

PATIENT
  Sex: Male
  Weight: 74.9 kg

DRUGS (21)
  1. OXYCODONE HCL [Concomitant]
     Indication: PAIN
     Dosage: 5-10 MG
     Route: 048
  2. ASPIRIN [Concomitant]
     Dosage: 81 MILLIGRAM
     Route: 048
  3. FINASTERIDE [Concomitant]
     Dosage: 5 MILLIGRAM
     Route: 048
  4. LENALIDOMIDE [Suspect]
     Dosage: 10 MILLIGRAM
     Route: 048
     Dates: start: 20111109, end: 20111114
  5. AZITHROMYCIN [Concomitant]
     Dosage: 250 MILLIGRAM
     Route: 048
  6. NEXIUM [Concomitant]
     Indication: PAIN
     Dosage: 40 MILLIGRAM
     Route: 048
  7. ACYCLOVIR [Concomitant]
     Indication: PAIN
     Dosage: 200 MILLIGRAM
     Route: 048
  8. LENALIDOMIDE [Suspect]
     Indication: MANTLE CELL LYMPHOMA
     Dosage: 10 MILLIGRAM
     Route: 048
     Dates: start: 20111010
  9. MULTI-VITAMINS [Concomitant]
     Dosage: 1 TABLET
     Route: 048
  10. ZOLPIDEM [Concomitant]
     Dosage: 5 MILLIGRAM
     Route: 048
  11. AMLODIPINE [Concomitant]
     Dosage: 10 MILLIGRAM
     Route: 048
  12. ALLOPURINOL [Concomitant]
     Dosage: 300 MILLIGRAM
     Route: 048
  13. SODIUM CHLORIDE [Concomitant]
     Dosage: 1000 MILLILITER
     Route: 041
     Dates: start: 20111114
  14. MEROPENEM [Concomitant]
     Dosage: 500 MILLIGRAM
     Route: 040
     Dates: start: 20111114, end: 20111114
  15. BENZONATATE [Concomitant]
     Indication: PAIN
     Dosage: 100 MILLIGRAM
     Route: 048
  16. ALBUTEROL SULFATE AND IPRATROPIUM BROMIDE [Concomitant]
     Dosage: 2 PUFF
     Route: 055
  17. VANCOMYCIN [Concomitant]
     Dosage: 1 GRAM
     Route: 040
     Dates: start: 20111114, end: 20111114
  18. ATIVAN [Concomitant]
     Dosage: 0.5 - 1 MG
     Route: 048
  19. TRIAMTERENE AND HYDROCHLOROTHIAZIDE [Concomitant]
     Dosage: 25/37.5
     Route: 048
  20. TESSALON [Concomitant]
     Dosage: 100 MILLIGRAM
     Route: 048
  21. PIROXICAM [Concomitant]
     Dosage: 20 MILLIGRAM
     Route: 048

REACTIONS (2)
  - DYSPNOEA [None]
  - PNEUMONIA [None]
